FAERS Safety Report 15741688 (Version 1)
Quarter: 2018Q4

REPORT INFORMATION
  Report Type: Spontaneous
  Country: US (occurrence: US)
  Receive Date: 20181219
  Receipt Date: 20181219
  Transmission Date: 20190205
  Serious: No
  Sender: FDA-Public Use
  Company Number: US-IMPAX LABORATORIES, LLC-2018-IPXL-02579

PATIENT
  Age: 57 Year
  Sex: Female

DRUGS (4)
  1. IBUPROFEN. [Concomitant]
     Active Substance: IBUPROFEN
     Indication: PRODUCT USED FOR UNKNOWN INDICATION
     Dosage: 600 MG, ONE TABLET, EVERY 6-8 HOURS (40 TABLETS)
     Route: 048
     Dates: start: 20180405
  2. COLESTIPOL HYDROCHLORIDE. [Suspect]
     Active Substance: COLESTIPOL HYDROCHLORIDE
     Indication: PROPHYLAXIS AGAINST DIARRHOEA
     Dosage: 1 G, ONCE A DAY
     Route: 048
     Dates: start: 2016
  3. COLESTIPOL HYDROCHLORIDE. [Suspect]
     Active Substance: COLESTIPOL HYDROCHLORIDE
     Indication: PRODUCT USE IN UNAPPROVED INDICATION
  4. METRONIDAZOLE. [Concomitant]
     Active Substance: METRONIDAZOLE
     Indication: VAGINAL INFECTION
     Dosage: 500 MG, TWO TIMES A DAY (BID)
     Route: 048
     Dates: start: 20180405, end: 20180711

REACTIONS (2)
  - Product physical issue [Unknown]
  - Drug ineffective for unapproved indication [Not Recovered/Not Resolved]

NARRATIVE: CASE EVENT DATE: 2018
